FAERS Safety Report 19626288 (Version 1)
Quarter: 2021Q3

REPORT INFORMATION
  Report Type: Spontaneous
  Country: DE (occurrence: DE)
  Receive Date: 20210729
  Receipt Date: 20210729
  Transmission Date: 20211014
  Serious: Yes (Other)
  Sender: FDA-Public Use
  Company Number: DE-TEVA-2021-DE-1937417

PATIENT
  Age: 34 Year
  Sex: Female

DRUGS (3)
  1. OVALEAP [Suspect]
     Active Substance: FOLLITROPIN ALFA
     Indication: ASSISTED REPRODUCTIVE TECHNOLOGY
     Dosage: 137.5 ? 162.5 IU (STEP?UP)
     Route: 065
  2. LETROZOL 5 MG [Suspect]
     Active Substance: LETROZOLE
     Indication: ASSISTED REPRODUCTIVE TECHNOLOGY
     Route: 065
  3. OVITRELLE [Suspect]
     Active Substance: CHORIOGONADOTROPIN ALFA
     Indication: ASSISTED REPRODUCTIVE TECHNOLOGY
     Route: 065

REACTIONS (1)
  - Ovarian hyperstimulation syndrome [Recovered/Resolved]

NARRATIVE: CASE EVENT DATE: 20210717
